FAERS Safety Report 6868789-X (Version None)
Quarter: 2010Q3

REPORT INFORMATION
  Report Type: 
  Country: None (occurrence: None)
  Receive Date: 20100722
  Receipt Date: 20080614
  Transmission Date: 20110219
  Serious: No
  Sender: FDA-Public Use
  Company Number: US-PFIZER INC-2008051413

PATIENT
  Sex: Female
  Weight: 63.5 kg

DRUGS (4)
  1. CHANTIX [Suspect]
     Dates: start: 20080101
  2. RANITIDINE [Concomitant]
     Indication: GASTROOESOPHAGEAL REFLUX DISEASE
  3. RANITIDINE [Concomitant]
     Indication: DYSPEPSIA
  4. MULTIVITAMINS, COMBINATIONS [Concomitant]

REACTIONS (5)
  - ARTHRALGIA [None]
  - FATIGUE [None]
  - HEADACHE [None]
  - MUSCULAR WEAKNESS [None]
  - MYALGIA [None]
